FAERS Safety Report 6083203-2 (Version None)
Quarter: 2009Q1

REPORT INFORMATION
  Report Type: 
  Country: None (occurrence: None)
  Receive Date: 20090219
  Receipt Date: 20090218
  Transmission Date: 20090719
  Serious: Yes (Hospitalization)
  Sender: FDA-Public Use
  Company Number: US-JNJFOC-20090105483

PATIENT
  Age: 15 Year
  Sex: Female

DRUGS (3)
  1. CONCERTA [Suspect]
     Route: 048
  2. CONCERTA [Suspect]
     Indication: ATTENTION DEFICIT/HYPERACTIVITY DISORDER
     Route: 048
  3. AMITYRPTALLINE [Suspect]
     Indication: HEADACHE

REACTIONS (4)
  - CONFUSIONAL STATE [None]
  - DELIRIUM [None]
  - MEMORY IMPAIRMENT [None]
  - SYNCOPE [None]
